FAERS Safety Report 17409503 (Version 2)
Quarter: 2020Q1

REPORT INFORMATION
  Report Type: Spontaneous
  Country: JP (occurrence: JP)
  Receive Date: 20200212
  Receipt Date: 20200225
  Transmission Date: 20200409
  Serious: Yes (Death)
  Sender: FDA-Public Use
  Company Number: JP-JNJFOC-20200152955

PATIENT
  Age: 43 Year
  Sex: Female

DRUGS (6)
  1. NAUZELIN [Suspect]
     Active Substance: DOMPERIDONE
     Indication: ANTIEMETIC SUPPORTIVE CARE
     Route: 065
     Dates: start: 20200124
  2. TRAMCET [Suspect]
     Active Substance: ACETAMINOPHEN\TRAMADOL
     Indication: PRODUCT USED FOR UNKNOWN INDICATION
     Dosage: UNKNOWN
     Route: 048
     Dates: start: 20200121, end: 20200127
  3. SYMPROIC [Suspect]
     Active Substance: NALDEMEDINE
     Indication: CANCER PAIN
     Route: 048
     Dates: start: 20200124
  4. LYRICA [Suspect]
     Active Substance: PREGABALIN
     Indication: CANCER PAIN
     Dosage: UNKNOWN
     Route: 048
     Dates: start: 20200124
  5. CHLOPHEDRIN S [Suspect]
     Active Substance: CHLORPHENIRAMINE MALEATE\DIHYDROCODEINE PHOSPHATE\METHYLEPHEDRINE HYDROCHLORIDE, DL-
     Indication: ANTITUSSIVE THERAPY
     Dosage: UNKNOWN
     Route: 048
     Dates: start: 20200124
  6. PA [Suspect]
     Active Substance: ACETAMINOPHEN\CAFFEINE\PROMETHAZINE\SALICYLAMIDE
     Indication: ANTITUSSIVE THERAPY
     Route: 048
     Dates: start: 20200124

REACTIONS (3)
  - Pyrexia [Unknown]
  - Pulmonary hypertension [Fatal]
  - Tachycardia paroxysmal [Recovering/Resolving]

NARRATIVE: CASE EVENT DATE: 2020
